FAERS Safety Report 9929261 (Version 1)
Quarter: 2014Q1

REPORT INFORMATION
  Report Type: Spontaneous
  Country: DE (occurrence: None)
  Receive Date: 20140221
  Receipt Date: 20140221
  Transmission Date: 20141002
  Serious: Yes (Other)
  Sender: FDA-Public Use
  Company Number: SYM-2014-17527

PATIENT
  Age: 71 Year
  Sex: Male

DRUGS (6)
  1. FLUOROURACIL (FLUOROURACIL) (SOLUTION FOR INFUSION) (FLUOROURACIL) [Suspect]
     Indication: COLON CANCER
     Dosage: 2400 MG/M2, EVERY CYCLE, INTRAVENOUS (NOT OTHERWISE SPECIFIED)
  2. FLUOROURACIL (FLUOROURACIL) (SOLUTION FOR INFUSION) (FLUOROURACIL) [Suspect]
     Indication: METASTASES TO LUNG
     Dosage: 2400 MG/M2, EVERY CYCLE, INTRAVENOUS (NOT OTHERWISE SPECIFIED)
  3. OXALIPLATIN [Suspect]
     Indication: COLON CANCER
     Dosage: 80 MG/M2, EVERY CYCLE, INTRAVENOUS (NOT OTHERWISE SPECIFIED)
  4. IRINOTECAN (IRINOTECAN) (IRINOTECAN) [Suspect]
     Indication: COLON CANCER
  5. LEUCOVORIN (FOLINIC ACID) (FOLINIC ACID) [Suspect]
     Indication: COLON CANCER
     Dosage: 400 MG/M2, EVERY CYCLE, INTRAVENOUS (NOT OTHERWISE SPECIFIED)
  6. BEVACIZUMAB (BEVACIZUMAB) (BEVACIZUMAB) [Suspect]
     Indication: COLON CANCER

REACTIONS (8)
  - Hypersensitivity vasculitis [None]
  - Renal failure chronic [None]
  - IgA nephropathy [None]
  - Glomerulosclerosis [None]
  - Toxicity to various agents [None]
  - Metastases to lung [None]
  - Metastases to liver [None]
  - Haemodialysis [None]
